FAERS Safety Report 21163746 (Version 1)
Quarter: 2022Q3

REPORT INFORMATION
  Report Type: Report from Study
  Country: ES (occurrence: ES)
  Receive Date: 20220803
  Receipt Date: 20220803
  Transmission Date: 20221026
  Serious: Yes (Other)
  Sender: FDA-Public Use
  Company Number: ES-CELGENE-144-21880-11010717

PATIENT
  Age: 30 Year
  Sex: Female

DRUGS (5)
  1. REVLIMID [Suspect]
     Active Substance: LENALIDOMIDE
     Indication: Product used for unknown indication
     Dosage: FREQUENCY TEXT: DAILY DAYS 1-21/28 DAYS
     Route: 050
     Dates: start: 20101115, end: 20101205
  2. REVLIMID [Suspect]
     Active Substance: LENALIDOMIDE
     Dosage: FREQUENCY TEXT: ONCE DAILY (QD)
     Route: 050
     Dates: start: 20101206, end: 20101212
  3. REVLIMID [Suspect]
     Active Substance: LENALIDOMIDE
     Dosage: FREQUENCY TEXT: ONCE DAILY (QD)
     Route: 050
     Dates: start: 20110110
  4. DEXAMETHASONE [Concomitant]
     Active Substance: DEXAMETHASONE
     Indication: Product used for unknown indication
     Dosage: FREQUENCY TEXT: MONTHLY TOTAL
     Route: 050
     Dates: start: 20101115, end: 20101212
  5. DEXAMETHASONE [Concomitant]
     Active Substance: DEXAMETHASONE
     Dosage: FREQUENCY TEXT: MONTHLY TOTAL
     Route: 050
     Dates: start: 20110110

REACTIONS (2)
  - Exposure via body fluid [Unknown]
  - Pregnancy on oral contraceptive [Unknown]
